FAERS Safety Report 15664024 (Version 1)
Quarter: 2018Q4

REPORT INFORMATION
  Report Type: Report from Study
  Country: US (occurrence: US)
  Receive Date: 20181128
  Receipt Date: 20181128
  Transmission Date: 20190205
  Serious: Yes (Other)
  Sender: FDA-Public Use
  Company Number: US-ROCHE-2035673

PATIENT
  Sex: Female
  Weight: 35 kg

DRUGS (8)
  1. NUTROPIN AQ [Suspect]
     Active Substance: SOMATROPIN
     Indication: POSTOPERATIVE HYPOPITUITARISM
     Dosage: ONGOING:YES, NUSPIN 10 0.1 MG DOSING INCREMENTS, 7 INJECTIONS PER WEEK, DISPENSED 1 MONTH SUPPLY AND
     Route: 058
  2. SYNTHROID [Concomitant]
     Active Substance: LEVOTHYROXINE SODIUM
     Route: 048
  3. ARICEPT [Concomitant]
     Active Substance: DONEPEZIL HYDROCHLORIDE
     Indication: DEMENTIA ALZHEIMER^S TYPE
     Route: 048
  4. LEVOXYL [Concomitant]
     Active Substance: LEVOTHYROXINE SODIUM
     Dosage: TAKE 100MCG BY MOUTH EVERY DAY
     Route: 048
  5. NUTROPIN AQ [Suspect]
     Active Substance: SOMATROPIN
     Indication: GROWTH HORMONE DEFICIENCY
     Route: 058
  6. NUTROPIN AQ [Suspect]
     Active Substance: SOMATROPIN
     Route: 058
  7. CORTEF [Concomitant]
     Active Substance: HYDROCORTISONE
     Dosage: IF FEVER RISES }101 OR MAJOR STRESS
     Route: 048
     Dates: start: 20180613, end: 20180613
  8. CORTEF [Concomitant]
     Active Substance: HYDROCORTISONE
     Dosage: INJECT AS DIRECTED ONCE FOR 1 DOSE
     Route: 048
     Dates: start: 20180614, end: 20180614

REACTIONS (6)
  - Mood swings [Unknown]
  - Pneumonia [Recovered/Resolved]
  - Otitis media [Recovered/Resolved]
  - Sleep apnoea syndrome [Unknown]
  - Weight decreased [Unknown]
  - Fatigue [Unknown]
